FAERS Safety Report 20050049 (Version 1)
Quarter: 2021Q4

REPORT INFORMATION
  Report Type: Spontaneous
  Country: US (occurrence: None)
  Receive Date: 20211109
  Receipt Date: 20211109
  Transmission Date: 20220303
  Serious: Yes (Hospitalization)
  Sender: FDA-Public Use
  Company Number: None

PATIENT
  Sex: Male

DRUGS (4)
  1. STELARA [Suspect]
     Active Substance: USTEKINUMAB
     Indication: Crohn^s disease
     Dosage: OTHER FREQUENCY : Q8W;?
     Route: 058
     Dates: start: 20210919
  2. MESALAMINE [Concomitant]
     Active Substance: MESALAMINE
  3. VITAMINS [Concomitant]
     Active Substance: VITAMINS
  4. PENTASA [Concomitant]
     Active Substance: MESALAMINE

REACTIONS (2)
  - Diarrhoea [None]
  - Condition aggravated [None]
